FAERS Safety Report 26204363 (Version 1)
Quarter: 2025Q4

REPORT INFORMATION
  Report Type: Report from Study
  Country: US (occurrence: US)
  Receive Date: 20251226
  Receipt Date: 20251226
  Transmission Date: 20260118
  Serious: Yes (Other)
  Sender: BIOGEN
  Company Number: US-BIOGEN-2096522

PATIENT
  Age: 35 Year
  Sex: Female

DRUGS (1)
  1. ZURZUVAE [Suspect]
     Active Substance: ZURANOLONE
     Indication: Perinatal depression
     Dates: start: 20251211, end: 20251215

REACTIONS (6)
  - Suicidal ideation [Recovered/Resolved]
  - Dissociation [Recovered/Resolved]
  - Somnolence [Recovered/Resolved]
  - Visual impairment [Recovered/Resolved]
  - Emotional distress [Recovered/Resolved]
  - Anger [Recovered/Resolved]

NARRATIVE: CASE EVENT DATE: 20251212
